FAERS Safety Report 6994168-0 (Version None)
Quarter: 2010Q3

REPORT INFORMATION
  Report Type: 
  Country: None (occurrence: None)
  Receive Date: 20100917
  Receipt Date: 20100914
  Transmission Date: 20110219
  Serious: Yes (Life-Threatening, Other)
  Sender: FDA-Public Use
  Company Number: US-ROXANE LABORATORIES, INC.-2010-RO-01227RO

PATIENT
  Age: 65 Year
  Sex: Female

DRUGS (2)
  1. MORPHINE [Suspect]
     Indication: BACK PAIN
     Dosage: 120 MG
  2. MORPHINE [Suspect]
     Route: 037

REACTIONS (2)
  - PRURITUS [None]
  - RESPIRATORY FAILURE [None]
